FAERS Safety Report 23996010 (Version 2)
Quarter: 2024Q3

REPORT INFORMATION
  Report Type: Spontaneous
  Country: ES (occurrence: ES)
  Receive Date: 20240620
  Receipt Date: 20240705
  Transmission Date: 20241016
  Serious: Yes (Hospitalization)
  Sender: TEVA
  Company Number: ES-TEVA-VS-3209227

PATIENT
  Age: 67 Year
  Sex: Female

DRUGS (2)
  1. SIMVASTATIN [Suspect]
     Active Substance: SIMVASTATIN
     Indication: Dyslipidaemia
     Route: 065
  2. IODINE I-131 [Concomitant]
     Active Substance: IODINE I-131
     Indication: Papillary thyroid cancer
     Route: 065

REACTIONS (2)
  - Myopathy [Recovering/Resolving]
  - Muscle necrosis [Unknown]
